FAERS Safety Report 18305259 (Version 5)
Quarter: 2020Q4

REPORT INFORMATION
  Report Type: Spontaneous
  Country: JP (occurrence: JP)
  Receive Date: 20200924
  Receipt Date: 20201104
  Transmission Date: 20210113
  Serious: Yes (Hospitalization, Other)
  Sender: FDA-Public Use
  Company Number: JP-GLAXOSMITHKLINE-JP2020JPN187409

PATIENT
  Age: 76 Year
  Sex: Female
  Weight: 44.4 kg

DRUGS (11)
  1. RIONA TABLET [Concomitant]
     Indication: CHRONIC KIDNEY DISEASE
     Dosage: 250 MG, TID, AFTER EVERY MEAL
     Dates: start: 202009, end: 202010
  2. FURSULTIAMINE [Concomitant]
     Active Substance: FURSULTIAMINE
     Indication: CONSTIPATION
     Dosage: 25 MG, QD, AFTER BREAKFAST
     Dates: start: 202009, end: 202010
  3. VALTREX [Suspect]
     Active Substance: VALACYCLOVIR HYDROCHLORIDE
     Indication: HERPES ZOSTER
     Dosage: 500 MG, TID, NOON, EVENING, AND MORNING
     Route: 048
     Dates: start: 20200917, end: 20200918
  4. BIFIDOBACTERIUM [Concomitant]
     Active Substance: BIFIDOBACTERIUM LONGUM
     Indication: CONSTIPATION
     Dosage: 12 MG, TID, AFTER EVERY MEAL
     Dates: start: 202009, end: 202010
  5. FUROSEMIDE TABLETS [Concomitant]
     Active Substance: FUROSEMIDE
     Indication: HYPERTENSION
     Dosage: 10 MG, QD, AFTER BREAKFAST
     Dates: start: 202009, end: 202010
  6. SODIUM BICARBONATE. [Concomitant]
     Active Substance: SODIUM BICARBONATE
     Indication: CONSTIPATION
     Dosage: 500 MG, BID, AFTER BREAKFAST AND DINNER
     Dates: start: 202009, end: 202010
  7. LOSARTAN K TABLETS [Concomitant]
     Indication: HYPERTENSION
     Dosage: 0.5 DF, QD, AFTER BREAKFAST
     Dates: start: 202009, end: 202010
  8. LINZESS TABLETS [Concomitant]
     Indication: CONSTIPATION
     Dosage: 0.5 MG, QD, BEFORE DINNER
     Dates: start: 202009, end: 202010
  9. ATORVASTATIN CALCIUM TABLET [Concomitant]
     Active Substance: ATORVASTATIN CALCIUM
     Indication: HYPERCHOLESTEROLAEMIA
     Dosage: 5 MG, QD, AFTER DINNER
     Dates: start: 202009, end: 202010
  10. RIONA TABLET [Concomitant]
     Indication: HYPERPHOSPHATAEMIA
  11. PICOSULFATE NA ORAL SOLUTION [Concomitant]
     Indication: CONSTIPATION
     Dosage: 30 ML, PRN AT CONSTIPATION
     Dates: start: 202009, end: 202010

REACTIONS (2)
  - Prescribed overdose [Unknown]
  - Altered state of consciousness [Recovered/Resolved]

NARRATIVE: CASE EVENT DATE: 20200917
